FAERS Safety Report 25233828 (Version 3)
Quarter: 2025Q2

REPORT INFORMATION
  Report Type: Spontaneous
  Country: US (occurrence: US)
  Receive Date: 20250424
  Receipt Date: 20250425
  Transmission Date: 20250717
  Serious: Yes (Other)
  Sender: SANDOZ
  Company Number: US-SANDOZ-SDZ2025US025475

PATIENT
  Sex: Female

DRUGS (1)
  1. OMNITROPE [Suspect]
     Active Substance: SOMATROPIN
     Indication: Product used for unknown indication
     Route: 058

REACTIONS (2)
  - Incorrect dose administered by device [Unknown]
  - Wrong technique in product usage process [Unknown]
